FAERS Safety Report 9071833 (Version 1)
Quarter: 2013Q1

REPORT INFORMATION
  Report Type: Report from Study
  Country: US (occurrence: US)
  Receive Date: 20130129
  Receipt Date: 20130129
  Transmission Date: 20140127
  Serious: No
  Sender: FDA-Public Use
  Company Number: US-ABBOTT-12P-163-0928082-00

PATIENT
  Age: 36 Year
  Sex: Female

DRUGS (4)
  1. HUMIRA 40 MG/0.8 ML PEN [Suspect]
     Indication: PSORIASIS
  2. LEXAPRO [Concomitant]
     Indication: BIPOLAR DISORDER
     Dosage: DAILY
  3. LAMICTAL [Concomitant]
     Indication: BIPOLAR DISORDER
     Dosage: DAILY
  4. IUD [Concomitant]
     Indication: CONTRACEPTION

REACTIONS (2)
  - Psoriasis [Not Recovered/Not Resolved]
  - Injection site erythema [Not Recovered/Not Resolved]
